FAERS Safety Report 21568603 (Version 4)
Quarter: 2023Q2

REPORT INFORMATION
  Report Type: Report from Study
  Country: CN (occurrence: CN)
  Receive Date: 20221108
  Receipt Date: 20230517
  Transmission Date: 20230721
  Serious: Yes (Hospitalization)
  Sender: FDA-Public Use
  Company Number: CN-OCULAR THERAPEUTIX-2022OCX00031

PATIENT
  Age: 74 Year
  Sex: Male
  Weight: 70 kg

DRUGS (4)
  1. DEXTENZA [Suspect]
     Active Substance: DEXAMETHASONE
     Indication: Eye inflammation
     Dosage: 0.4 MG, SINGLE, LACRIMAL CANALICULAR INSERTION
     Route: 047
     Dates: start: 20220528, end: 20220528
  2. DEXTENZA [Suspect]
     Active Substance: DEXAMETHASONE
     Indication: Cataract operation complication
  3. LEVOFLOXACIN [Concomitant]
     Active Substance: LEVOFLOXACIN
     Dosage: 0.02 ML, 4X/DAY
     Dates: start: 20220506
  4. SODIUM HYALURONATE [Concomitant]
     Active Substance: HYALURONATE SODIUM
     Dosage: 0.02 ML, 4X/DAY
     Dates: start: 20220526

REACTIONS (5)
  - Subclavian artery stenosis [Recovered/Resolved]
  - Arteriosclerosis coronary artery [Recovering/Resolving]
  - Angina pectoris [Recovering/Resolving]
  - Hyperlipidaemia [Recovering/Resolving]
  - Hypertension [Recovering/Resolving]

NARRATIVE: CASE EVENT DATE: 20220701
